FAERS Safety Report 17794108 (Version 16)
Quarter: 2023Q4

REPORT INFORMATION
  Report Type: Spontaneous
  Country: PL (occurrence: PL)
  Receive Date: 20200515
  Receipt Date: 20231222
  Transmission Date: 20240110
  Serious: Yes (Life-Threatening, Hospitalization, Disabling, Other)
  Sender: FDA-Public Use
  Company Number: PL-USP-ICSR-2020-14-82_13

PATIENT
  Age: 32 Year
  Sex: Male

DRUGS (27)
  1. ESCITALOPRAM [Interacting]
     Active Substance: ESCITALOPRAM OXALATE
     Indication: Depression
     Dosage: 10 MG, QD (1/DAY) IN THE MORNING
     Route: 065
  2. ESCITALOPRAM [Interacting]
     Active Substance: ESCITALOPRAM OXALATE
     Indication: Abdominal pain upper
     Dosage: 10 MILLIGRAM, QD (10 MG/DAY (IN THE MORNING)
     Route: 065
  3. ESCITALOPRAM [Interacting]
     Active Substance: ESCITALOPRAM OXALATE
     Dosage: UNK
     Route: 065
  4. ESOMEPRAZOLE [Interacting]
     Active Substance: ESOMEPRAZOLE
     Indication: Abdominal pain upper
     Dosage: 40 MILLIGRAM, QD (40MG/DAY)
     Route: 048
  5. ESOMEPRAZOLE [Interacting]
     Active Substance: ESOMEPRAZOLE
     Indication: Abdominal pain
     Dosage: 40 MILLIGRAM, QD (40MG/DAY)
     Route: 065
  6. ESOMEPRAZOLE [Interacting]
     Active Substance: ESOMEPRAZOLE
     Dosage: UNK
     Route: 065
  7. ACETAMINOPHEN\CHLORPHENIRAMINE MALEATE\DEXTROMETHORPHAN HYDROBROMIDE\P [Interacting]
     Active Substance: ACETAMINOPHEN\CHLORPHENIRAMINE MALEATE\DEXTROMETHORPHAN HYDROBROMIDE\PSEUDOEPHEDRINE
     Indication: Upper respiratory tract infection
     Dosage: UNK (OCCLUSIVE DRESSING TECHNIQUE)
     Route: 065
  8. PERAZINE [Interacting]
     Active Substance: PERAZINE
     Indication: Insomnia
     Dosage: 50 MILLIGRAM, HS, QD (50 MG FOR NIGHT), IN EVENING
     Route: 048
  9. PERAZINE [Interacting]
     Active Substance: PERAZINE
     Indication: Sleep disorder
  10. PROMETHAZINE HYDROCHLORIDE [Interacting]
     Active Substance: PROMETHAZINE HYDROCHLORIDE
     Indication: Cough
     Dosage: 150 MILLIGRAM, QD (50 MG, TID (3/DAY))
     Route: 048
  11. PROMETHAZINE HYDROCHLORIDE [Interacting]
     Active Substance: PROMETHAZINE HYDROCHLORIDE
     Indication: Antitussive therapy
     Dosage: 50 MILLIGRAM, TID(50 MG THREE TIMES A DAY   )
     Route: 065
  12. PROMETHAZINE HYDROCHLORIDE [Interacting]
     Active Substance: PROMETHAZINE HYDROCHLORIDE
     Dosage: UNK
     Route: 065
  13. DEXTROMETHORPHAN [Interacting]
     Active Substance: DEXTROMETHORPHAN
     Indication: Antitussive therapy
     Dosage: UNK
     Route: 065
  14. DEXTROMETHORPHAN [Interacting]
     Active Substance: DEXTROMETHORPHAN
     Indication: Cough
  15. PSEUDOEPHEDRINE [Interacting]
     Active Substance: PSEUDOEPHEDRINE
     Indication: Upper respiratory tract infection
     Dosage: UNK
     Route: 065
  16. PSEUDOEPHEDRINE [Interacting]
     Active Substance: PSEUDOEPHEDRINE
     Indication: Viral infection
  17. CHLORPHENIRAMINE [Interacting]
     Active Substance: CHLORPHENIRAMINE
     Indication: Upper respiratory tract infection
     Dosage: UNK
     Route: 065
  18. CHLORPHENIRAMINE [Interacting]
     Active Substance: CHLORPHENIRAMINE
     Indication: Viral infection
  19. ACETAMINOPHEN [Interacting]
     Active Substance: ACETAMINOPHEN
     Indication: Upper respiratory tract infection
     Dosage: UNK
     Route: 065
  20. ACETAMINOPHEN [Interacting]
     Active Substance: ACETAMINOPHEN
     Indication: Viral infection
  21. METAMIZOLE [Interacting]
     Active Substance: METAMIZOLE
     Indication: Pyrexia
     Dosage: UNK
     Route: 065
  22. METAMIZOLE [Interacting]
     Active Substance: METAMIZOLE
     Indication: Viral infection
  23. ACETAMINOPHEN\CHLORPHENIRAMINE MALEATE [Interacting]
     Active Substance: ACETAMINOPHEN\CHLORPHENIRAMINE MALEATE
     Indication: Upper respiratory tract infection
     Dosage: UNK
     Route: 065
  24. PROMETHAZINE [Suspect]
     Active Substance: PROMETHAZINE HYDROCHLORIDE
     Indication: Cough
     Dosage: 150 MILLIGRAM, QD (50 MG, TID)
     Route: 065
  25. PROMETHAZINE [Suspect]
     Active Substance: PROMETHAZINE HYDROCHLORIDE
     Indication: Viral infection
  26. CYPROHEPTADINE [Concomitant]
     Active Substance: CYPROHEPTADINE
     Indication: Serotonin syndrome
     Dosage: UNK
     Route: 065
  27. CYPROHEPTADINE [Concomitant]
     Active Substance: CYPROHEPTADINE
     Dosage: UNK
     Route: 065

REACTIONS (23)
  - Serotonin syndrome [Recovered/Resolved]
  - Sedation [Recovered/Resolved]
  - Clonus [Recovered/Resolved]
  - Respiratory rate increased [Recovered/Resolved]
  - Abdominal pain upper [Recovered/Resolved]
  - Restless legs syndrome [Recovered/Resolved]
  - Abdominal pain [Recovered/Resolved]
  - Hypersomnia [Recovered/Resolved]
  - Cough [Recovering/Resolving]
  - Nasal congestion [Recovering/Resolving]
  - Condition aggravated [Recovered/Resolved]
  - Upper respiratory tract infection [Recovered/Resolved]
  - Diarrhoea [Recovered/Resolved]
  - Pyrexia [Recovered/Resolved]
  - Hyperhidrosis [Recovered/Resolved]
  - Body temperature increased [Recovered/Resolved]
  - Restlessness [Recovered/Resolved]
  - Medication error [Not Recovered/Not Resolved]
  - Labelled drug-drug interaction medication error [Recovered/Resolved]
  - Drug ineffective [Unknown]
  - Drug interaction [Recovered/Resolved]
  - Product use in unapproved indication [Unknown]
  - Intentional product misuse [Unknown]
